FAERS Safety Report 17119784 (Version 1)
Quarter: 2019Q4

REPORT INFORMATION
  Report Type: Spontaneous
  Country: US (occurrence: US)
  Receive Date: 20191113
  Receipt Date: 20191113
  Transmission Date: 20200122
  Serious: No
  Sender: FDA-Public Use
  Company Number: None

PATIENT

DRUGS (2)
  1. TIZANIDINE. [Suspect]
     Active Substance: TIZANIDINE
  2. PRAVASTATIN SODIUM 10MG [Suspect]
     Active Substance: PRAVASTATIN SODIUM

REACTIONS (11)
  - Wrong product administered [None]
  - Nausea [None]
  - Headache [None]
  - Migraine [None]
  - Tremor [None]
  - Alopecia [None]
  - Diarrhoea [None]
  - Pain [None]
  - Muscle spasms [None]
  - Product commingling [None]
  - Systemic lupus erythematosus [None]
